FAERS Safety Report 14588216 (Version 1)
Quarter: 2018Q1

REPORT INFORMATION
  Report Type: Report from Study
  Country: NL (occurrence: NL)
  Receive Date: 20180301
  Receipt Date: 20180301
  Transmission Date: 20180509
  Serious: Yes (Hospitalization, Other)
  Sender: FDA-Public Use
  Company Number: NL-TEVA-2018-NL-861079

PATIENT
  Age: 65 Year
  Sex: Female

DRUGS (13)
  1. BLINDED BELIMUMAB [Suspect]
     Active Substance: BELIMUMAB
     Indication: SJOGREN^S SYNDROME
     Route: 065
  2. SALICYLIC ACID. [Concomitant]
     Active Substance: SALICYLIC ACID
     Indication: THROMBOSIS
     Dosage: 80 MILLIGRAM DAILY;
     Route: 048
     Dates: start: 20160209, end: 20160422
  3. NIFEDIPINE RETARD [Concomitant]
     Indication: HYPERTENSION
     Dosage: 60 MILLIGRAM DAILY;
     Route: 048
     Dates: start: 20160209, end: 20160428
  4. LOSARTAN. [Concomitant]
     Active Substance: LOSARTAN
     Dosage: 50 MG, SINGLE
     Route: 047
     Dates: start: 20160209, end: 20160428
  5. BLINDED RITUXIMAB [Suspect]
     Active Substance: RITUXIMAB
     Indication: SJOGREN^S SYNDROME
     Route: 065
  6. RESONIUM [Suspect]
     Active Substance: SODIUM POLYSTYRENE SULFONATE
     Indication: BLOOD POTASSIUM INCREASED
     Dosage: 15 MG, QD
     Route: 048
     Dates: start: 20160430, end: 20160503
  7. PERFALGAN [Suspect]
     Active Substance: ACETAMINOPHEN
     Indication: PAIN
     Dosage: 1000 MG, QID
     Dates: start: 20160428, end: 20160502
  8. OXYNORM [Suspect]
     Active Substance: OXYCODONE HYDROCHLORIDE
     Indication: PAIN
     Dosage: 5 MG, PRN
     Route: 048
     Dates: start: 20160429, end: 20160504
  9. LOSARTAN. [Concomitant]
     Active Substance: LOSARTAN
     Indication: HYPERTENSION
     Dosage: 50 MILLIGRAM DAILY;
     Route: 048
     Dates: start: 20160504
  10. SALICYLIC ACID. [Concomitant]
     Active Substance: SALICYLIC ACID
     Dosage: 80 MILLIGRAM DAILY;
     Route: 048
     Dates: start: 20160503
  11. MORPHINE [Suspect]
     Active Substance: MORPHINE
     Indication: PAIN
     Dosage: 4 MG, SINGLE
     Route: 058
     Dates: start: 20160428, end: 20160428
  12. NIFEDIPINE RETARD [Concomitant]
     Dosage: 60 MILLIGRAM DAILY;
     Route: 048
     Dates: start: 20160430
  13. PREDNISON [Concomitant]
     Active Substance: PREDNISONE
     Indication: LUPUS NEPHRITIS
     Dosage: 30 MILLIGRAM DAILY;
     Route: 048
     Dates: start: 20160429, end: 20160706

REACTIONS (1)
  - Post procedural haemorrhage [Recovered/Resolved]

NARRATIVE: CASE EVENT DATE: 20160428
